FAERS Safety Report 6940026-7 (Version None)
Quarter: 2010Q3

REPORT INFORMATION
  Report Type: 
  Country: None (occurrence: None)
  Receive Date: 20100825
  Receipt Date: 20100814
  Transmission Date: 20110219
  Serious: Yes (Hospitalization)
  Sender: FDA-Public Use
  Company Number: FR-PFIZER INC-2010102567

PATIENT
  Age: 42 Year
  Sex: Female

DRUGS (2)
  1. CEFPODOXIME PROXETIL [Suspect]
     Indication: EAR INFECTION
     Dosage: 100 MG
     Route: 048
     Dates: start: 20100703, end: 20100705
  2. SURGAM [Suspect]
     Indication: EAR INFECTION
     Dosage: UNK
     Route: 048
     Dates: start: 20100703, end: 20100705

REACTIONS (1)
  - PHOTOSENSITIVITY REACTION [None]
